FAERS Safety Report 9523329 (Version 1)
Quarter: 2013Q1

REPORT INFORMATION
  Report Type: Spontaneous
  Country: US (occurrence: None)
  Receive Date: 20130305
  Receipt Date: 20130305
  Transmission Date: 20140127
  Serious: Yes (Other)
  Sender: FDA-Public Use
  Company Number: 163-21880-12072449

PATIENT
  Age: 64 Year
  Sex: Male
  Weight: 92.5 kg

DRUGS (21)
  1. REVLIMID (LENALIDOMIDE) (CAPSULES) [Suspect]
     Indication: PLASMA CELL MYELOMA
     Dosage: 25 MG, 21 IN 21 D, PO
     Route: 048
     Dates: start: 20101007
  2. NEUPOGEN (FILGRASTIM) [Concomitant]
  3. ACIPHEX (RABEPRAZOLE SODIUM) (TABLETS) [Concomitant]
  4. FISH OIL (FISH OIL) (CAPSULES) [Concomitant]
  5. GLUCOSAMINE (GLUCOSAMINE) (CAPSULES) [Concomitant]
  6. MULTIVITAMINS (MULTIVITAMINS) (TABLETS) [Concomitant]
  7. TYLENOL EXTRA STRENGTH (PARACETAMOL) (TABLETS) [Concomitant]
  8. VITAMIN D (ERGOCALCIFEROL) (CAPSULES) [Concomitant]
  9. ZANTAC (RANITIDINE HYDROCHLORIDE) (TABLETS) [Concomitant]
  10. FILGRASTIM (FILGRASTIM) (INJECTION) [Concomitant]
  11. ZOLEDRONIC ACID (ZOLEDRONIC ACID) (INJECTION) [Concomitant]
  12. DILAUDID (HYDROMORPHINE HYDROCHLORIDE) (TABLETS) [Concomitant]
  13. DIPHENHYDRAMINE HCL (DIPHENHYDRAMINE HYDROCHLORIDE) (INJECTION) [Concomitant]
  14. HYDROCORTISONE (HYDROCORTISONE) (INJECTION) [Concomitant]
  15. METHYLPREDNISOLONE (METHYLPREDNISONLONE) (INJECTION) [Concomitant]
  16. SODIUM CHLORIDE (SODIUM CHLORIDE) (0.9 PERCENT, INJECTION) [Concomitant]
  17. DEXAMETHASONE (DEXAMETHASONE) (CAPSULES) [Concomitant]
  18. VELCADE (BORTEZOMIB) (CAPSULES) [Concomitant]
  19. ACYCLOVIR (ACICLOVIR) (TABLETS) [Concomitant]
  20. ZOMETA (ZOLEDRONIC ACID) (TABLETS) [Concomitant]
  21. LYRICA (PREGABALIN) (CAPSULES) [Concomitant]

REACTIONS (1)
  - Bone marrow toxicity [None]
